FAERS Safety Report 17920085 (Version 1)
Quarter: 2020Q2

REPORT INFORMATION
  Report Type: Spontaneous
  Country: CA (occurrence: CA)
  Receive Date: 20200620
  Receipt Date: 20200620
  Transmission Date: 20200714
  Serious: Yes (Other)
  Sender: FDA-Public Use
  Company Number: CA-ACCORD-185820

PATIENT
  Age: 48 Year
  Sex: Female

DRUGS (16)
  1. TAMOXIFEN [Suspect]
     Active Substance: TAMOXIFEN
     Indication: PRODUCT USED FOR UNKNOWN INDICATION
     Route: 048
  2. METOCLOPRAMIDE. [Concomitant]
     Active Substance: METOCLOPRAMIDE
  3. TAXOL [Concomitant]
     Active Substance: PACLITAXEL
     Dosage: SOLUTION INTRAVENOUS
  4. ATIVAN [Concomitant]
     Active Substance: LORAZEPAM
  5. ERGOCALCIFEROL. [Concomitant]
     Active Substance: ERGOCALCIFEROL
  6. ANASTROZOLE. [Suspect]
     Active Substance: ANASTROZOLE
     Indication: PRODUCT USED FOR UNKNOWN INDICATION
     Route: 048
  7. IBRANCE [Suspect]
     Active Substance: PALBOCICLIB
     Indication: BREAST CANCER METASTATIC
     Route: 048
  8. IBRANCE [Suspect]
     Active Substance: PALBOCICLIB
     Indication: BREAST CANCER METASTATIC
     Route: 048
  9. ADVIL [Concomitant]
     Active Substance: IBUPROFEN
  10. CALCIUM CARBONATE. [Concomitant]
     Active Substance: CALCIUM CARBONATE
  11. TAMOXIFEN [Suspect]
     Active Substance: TAMOXIFEN
     Indication: PRODUCT USED FOR UNKNOWN INDICATION
     Route: 048
  12. LETROZOLE. [Concomitant]
     Active Substance: LETROZOLE
  13. MACROGOL/MACROGOL STEARATE [Concomitant]
     Active Substance: POLYETHYLENE GLYCOLS
  14. STATEX [Concomitant]
  15. NASONEX [Concomitant]
     Active Substance: MOMETASONE FUROATE
     Dosage: METERED DOSE
  16. IBRANCE [Suspect]
     Active Substance: PALBOCICLIB
     Indication: BREAST CANCER METASTATIC
     Route: 048

REACTIONS (9)
  - Fatigue [Recovered/Resolved]
  - Platelet count decreased [Recovered/Resolved]
  - Myalgia [Recovered/Resolved]
  - Neutropenia [Recovered/Resolved]
  - Stomatitis [Recovered/Resolved]
  - Dyspnoea [Recovered/Resolved]
  - Arthralgia [Recovered/Resolved]
  - Neoplasm recurrence [Recovered/Resolved]
  - Upper respiratory tract infection [Recovered/Resolved]
